FAERS Safety Report 7717162-0 (Version None)
Quarter: 2011Q3

REPORT INFORMATION
  Report Type: 
  Country: None (occurrence: None)
  Receive Date: 20110826
  Receipt Date: 20110826
  Transmission Date: 20111222
  Serious: No
  Sender: FDA-Public Use
  Company Number: None

PATIENT
  Age: 64 Year
  Sex: Female

DRUGS (9)
  1. MEGACE [Concomitant]
  2. METOPROLOL TARTRATE [Concomitant]
  3. ONDANSETRON [Concomitant]
  4. ALLOPURINOL [Concomitant]
  5. REGULAR INSULIN [Concomitant]
  6. REVLIMID [Suspect]
     Indication: MULTIPLE MYELOMA
     Dosage: REVLIMID 15M DAILY X21D ORALLY
     Route: 048
     Dates: start: 20110701
  7. EZETIMIBE [Concomitant]
  8. FLUOEXETINE [Concomitant]
  9. ATIVAN [Concomitant]

REACTIONS (2)
  - CONDITION AGGRAVATED [None]
  - NEUROPATHY PERIPHERAL [None]
